FAERS Safety Report 8421158-3 (Version None)
Quarter: 2012Q2

REPORT INFORMATION
  Report Type: 
  Country: None (occurrence: None)
  Receive Date: 20120323
  Receipt Date: 20110627
  Transmission Date: 20120825
  Serious: Yes (Other)
  Sender: FDA-Public Use
  Company Number: 163-21880-11063621

PATIENT
  Age: 60 Year
  Sex: Male
  Weight: 138.3471 kg

DRUGS (5)
  1. POTASSIUM CHLORIDE [Concomitant]
  2. LOTREL [Concomitant]
  3. REVLIMID [Suspect]
     Indication: MULTIPLE MYELOMA
     Dosage: 25 MG, DAILY X 21/28 DAYS, PO
     Route: 048
     Dates: start: 20110624
  4. MAGNESIUM (MAGNESIUM) [Concomitant]
  5. CLONIDINE [Concomitant]

REACTIONS (2)
  - RENAL IMPAIRMENT [None]
  - DYSURIA [None]
